FAERS Safety Report 17057883 (Version 1)
Quarter: 2019Q4

REPORT INFORMATION
  Report Type: Spontaneous
  Country: US (occurrence: US)
  Receive Date: 20191120
  Receipt Date: 20191120
  Transmission Date: 20200122
  Serious: Yes (Disabling)
  Sender: FDA-Public Use
  Company Number: None

PATIENT
  Age: 25 Year
  Sex: Female
  Weight: 50.6 kg

DRUGS (2)
  1. KETAMINE INFUSION IN NS - 5MG/ML [Suspect]
     Active Substance: KETAMINE
  2. GABAPENTIN. [Suspect]
     Active Substance: GABAPENTIN

REACTIONS (2)
  - Mental status changes [None]
  - Muscular weakness [None]

NARRATIVE: CASE EVENT DATE: 20191005
